FAERS Safety Report 11250587 (Version 1)
Quarter: 2015Q3

REPORT INFORMATION
  Report Type: Spontaneous
  Country: US (occurrence: US)
  Receive Date: 20150708
  Receipt Date: 20150708
  Transmission Date: 20151125
  Serious: Yes (Other)
  Sender: FDA-Public Use
  Company Number: US-ELI_LILLY_AND_COMPANY-US200902003195

PATIENT
  Age: 49 Year
  Sex: Male
  Weight: 104.2 kg

DRUGS (1)
  1. XIGRIS [Suspect]
     Active Substance: DROTRECOGIN ALFA (ACTIVATED)
     Indication: STREPTOCOCCAL SEPSIS
     Dosage: 24 MG/KG, EVERY HOUR
     Route: 042
     Dates: start: 20090211, end: 20090215

REACTIONS (2)
  - International normalised ratio increased [Unknown]
  - Activated partial thromboplastin time prolonged [Unknown]

NARRATIVE: CASE EVENT DATE: 20090212
